FAERS Safety Report 12098554 (Version 1)
Quarter: 2016Q1

REPORT INFORMATION
  Report Type: Spontaneous
  Country: US (occurrence: US)
  Receive Date: 20160222
  Receipt Date: 20160222
  Transmission Date: 20160526
  Serious: Yes (Hospitalization)
  Sender: FDA-Public Use
  Company Number: US-BEH-2016058853

PATIENT
  Age: 76 Year
  Sex: Female
  Weight: 83.4 kg

DRUGS (20)
  1. CIPRO [Concomitant]
     Active Substance: CIPROFLOXACIN HYDROCHLORIDE
  2. ADVAIR HFA [Concomitant]
     Active Substance: FLUTICASONE PROPIONATE\SALMETEROL XINAFOATE
  3. EPIPEN [Concomitant]
     Active Substance: EPINEPHRINE
  4. CLONIDINE. [Concomitant]
     Active Substance: CLONIDINE
  5. HYDRALAZINE [Concomitant]
     Active Substance: HYDRALAZINE HYDROCHLORIDE
  6. SIMVASTATIN. [Concomitant]
     Active Substance: SIMVASTATIN
  7. NEXIUM [Concomitant]
     Active Substance: ESOMEPRAZOLE MAGNESIUM
  8. HIZENTRA [Suspect]
     Active Substance: HUMAN IMMUNOGLOBULIN G
     Indication: IMMUNODEFICIENCY COMMON VARIABLE
     Dosage: 4 GM 20 ML VIALS
     Route: 058
  9. LIDOCAINE. [Concomitant]
     Active Substance: LIDOCAINE
  10. OXYGEN. [Concomitant]
     Active Substance: OXYGEN
  11. MULTIVITAMINS [Concomitant]
     Active Substance: VITAMINS
  12. DIPHENHYDRAMINE. [Concomitant]
     Active Substance: DIPHENHYDRAMINE
  13. LASIX [Concomitant]
     Active Substance: FUROSEMIDE
  14. CALCIUM CITRATE [Concomitant]
     Active Substance: CALCIUM CITRATE
  15. WARFARIN [Concomitant]
     Active Substance: WARFARIN
  16. AMLODIPINE [Concomitant]
     Active Substance: AMLODIPINE BESYLATE
  17. BENAZEPRIL [Concomitant]
     Active Substance: BENAZEPRIL HYDROCHLORIDE
  18. POTASSIUM CHLORIDE. [Concomitant]
     Active Substance: POTASSIUM CHLORIDE
  19. ACCOLATE [Concomitant]
     Active Substance: ZAFIRLUKAST
  20. ALBUTEROL. [Concomitant]
     Active Substance: ALBUTEROL

REACTIONS (2)
  - Pneumonia [Recovered/Resolved]
  - Dyspnoea [Recovered/Resolved]

NARRATIVE: CASE EVENT DATE: 20160118
